FAERS Safety Report 7917149-9 (Version None)
Quarter: 2011Q4

REPORT INFORMATION
  Report Type: 
  Country: None (occurrence: None)
  Receive Date: 20111116
  Receipt Date: 20111108
  Transmission Date: 20120403
  Serious: Yes (Hospitalization)
  Sender: FDA-Public Use
  Company Number: DE-TEVA-308499GER

PATIENT
  Age: 61 Year
  Sex: Female
  Weight: 66 kg

DRUGS (2)
  1. CISPLATIN [Suspect]
     Indication: PALLIATIVE CARE
     Route: 042
     Dates: start: 20110324, end: 20110510
  2. ETOPOSIDE [Suspect]
     Indication: PALLIATIVE CARE
     Route: 042
     Dates: start: 20110323, end: 20110512

REACTIONS (1)
  - ENTERITIS [None]
